FAERS Safety Report 21278759 (Version 4)
Quarter: 2022Q4

REPORT INFORMATION
  Report Type: Spontaneous
  Country: US (occurrence: US)
  Receive Date: 20220901
  Receipt Date: 20221107
  Transmission Date: 20230113
  Serious: Yes (Hospitalization)
  Sender: FDA-Public Use
  Company Number: US-BIOGEN-2022BI01151209

PATIENT
  Age: 36 Year
  Sex: Female

DRUGS (4)
  1. TYSABRI [Suspect]
     Active Substance: NATALIZUMAB
     Indication: Multiple sclerosis
     Route: 050
     Dates: start: 20121218, end: 20130424
  2. TYSABRI [Suspect]
     Active Substance: NATALIZUMAB
     Route: 050
     Dates: start: 20091112, end: 20121024
  3. TYSABRI [Suspect]
     Active Substance: NATALIZUMAB
     Route: 050
     Dates: start: 20130731, end: 20140203
  4. TYSABRI [Suspect]
     Active Substance: NATALIZUMAB
     Route: 050
     Dates: start: 20210114

REACTIONS (6)
  - Concussion [Recovered/Resolved]
  - Traumatic intracranial haemorrhage [Unknown]
  - Fall [Recovered/Resolved]
  - Head injury [Unknown]
  - Pain [Unknown]
  - Akinesia [Unknown]

NARRATIVE: CASE EVENT DATE: 20220902
